FAERS Safety Report 15653819 (Version 1)
Quarter: 2018Q4

REPORT INFORMATION
  Report Type: Spontaneous
  Country: US (occurrence: US)
  Receive Date: 20181123
  Receipt Date: 20181123
  Transmission Date: 20190205
  Serious: Yes (Hospitalization)
  Sender: FDA-Public Use
  Company Number: None

PATIENT
  Age: 56 Year
  Sex: Female
  Weight: 62.1 kg

DRUGS (12)
  1. BIOTIN [Concomitant]
     Active Substance: BIOTIN
  2. VITAMIN C [Concomitant]
     Active Substance: ASCORBIC ACID
  3. COLACE [Concomitant]
     Active Substance: DOCUSATE SODIUM
  4. MULTIVITAMIN WOMEN^S GUMMIE [Concomitant]
  5. HUMIRA [Suspect]
     Active Substance: ADALIMUMAB
     Indication: SPONDYLOARTHROPATHY
     Dosage: ?          QUANTITY:1 INJECTION(S);OTHER FREQUENCY:EVERY WEEK;?
     Route: 058
     Dates: start: 20181031, end: 20181031
  6. ZYRTEC [Concomitant]
     Active Substance: CETIRIZINE HYDROCHLORIDE
  7. ZOLOFT [Concomitant]
     Active Substance: SERTRALINE HYDROCHLORIDE
  8. HUMIRA [Suspect]
     Active Substance: ADALIMUMAB
     Indication: POLYARTHRITIS
     Dosage: ?          QUANTITY:1 INJECTION(S);OTHER FREQUENCY:EVERY WEEK;?
     Route: 058
     Dates: start: 20181031, end: 20181031
  9. SPIRONOLACTONE. [Concomitant]
     Active Substance: SPIRONOLACTONE
  10. CRESTOR [Concomitant]
     Active Substance: ROSUVASTATIN CALCIUM
  11. VITAMIN D3 [Concomitant]
     Active Substance: CHOLECALCIFEROL
  12. FIBER GUMMIES [Concomitant]

REACTIONS (16)
  - Pruritus generalised [None]
  - Eye pain [None]
  - Glossitis [None]
  - Nausea [None]
  - Abdominal pain upper [None]
  - Rash macular [None]
  - Oral pruritus [None]
  - Cyst [None]
  - Hypersensitivity [None]
  - Ear congestion [None]
  - Eye inflammation [None]
  - Pain [None]
  - Swelling face [None]
  - Hepatic function abnormal [None]
  - Miliaria [None]
  - Oropharyngeal pain [None]

NARRATIVE: CASE EVENT DATE: 20181031
